FAERS Safety Report 19098558 (Version 5)
Quarter: 2021Q3

REPORT INFORMATION
  Report Type: Spontaneous
  Country: IN (occurrence: IN)
  Receive Date: 20210406
  Receipt Date: 20210914
  Transmission Date: 20211014
  Serious: Yes (Other)
  Sender: FDA-Public Use
  Company Number: IN-PFIZER INC-2020126296

PATIENT
  Age: 42 Year
  Sex: Female

DRUGS (3)
  1. PALBACE [Suspect]
     Active Substance: PALBOCICLIB
     Indication: BREAST CANCER METASTATIC
     Dosage: 125 MG, 1X/DAY
     Route: 048
     Dates: start: 20181129
  2. LETROZOLE. [Concomitant]
     Active Substance: LETROZOLE
     Indication: BREAST CANCER METASTATIC
     Dosage: 2.5 MG, DAILY (4 WEEKS)
  3. PALBACE [Suspect]
     Active Substance: PALBOCICLIB
     Dosage: 125 MG, DAILY (3WEEKS)
     Route: 048
     Dates: start: 20210701

REACTIONS (6)
  - Bone pain [Unknown]
  - Fall [Unknown]
  - Somnolence [Unknown]
  - Bedridden [Unknown]
  - Lower limb fracture [Unknown]
  - Malaise [Not Recovered/Not Resolved]
